FAERS Safety Report 7992543-9 (Version None)
Quarter: 2011Q4

REPORT INFORMATION
  Report Type: 
  Country: None (occurrence: None)
  Receive Date: 20111219
  Receipt Date: 20111205
  Transmission Date: 20120403
  Serious: Yes (Death)
  Sender: FDA-Public Use
  Company Number: PHHY2011US109177

PATIENT
  Age: 37 Year
  Sex: Female

DRUGS (14)
  1. ARIPIPRAZOLE [Suspect]
  2. LEVOTHYROXINE SODIUM [Suspect]
  3. OPIOIDS [Suspect]
     Route: 048
  4. DULOXETINE HYDROCHLORIDE [Suspect]
  5. GEMFIBROZIL [Suspect]
  6. METFORMIN HCL [Suspect]
  7. BUPROPION HCL [Suspect]
  8. ETHANOL [Suspect]
  9. PREDNISONE TAB [Suspect]
  10. OXCARBAZEPINE [Suspect]
     Route: 048
  11. CLONAZEPAM [Suspect]
  12. SIMVASTATIN [Suspect]
  13. RANITIDINE [Suspect]
  14. TOPIRAMATE [Suspect]

REACTIONS (1)
  - COMPLETED SUICIDE [None]
